FAERS Safety Report 16513863 (Version 1)
Quarter: 2019Q3

REPORT INFORMATION
  Report Type: Spontaneous
  Country: US (occurrence: US)
  Receive Date: 20190701
  Receipt Date: 20190701
  Transmission Date: 20191004
  Serious: No
  Sender: FDA-Public Use
  Company Number: US-ROCHE-2194407

PATIENT
  Age: 67 Year
  Sex: Male
  Weight: 83.99 kg

DRUGS (3)
  1. CLONAZEPAM. [Suspect]
     Active Substance: CLONAZEPAM
     Indication: PANIC ATTACK
     Route: 065
     Dates: start: 20181002
  2. CLONAZEPAM. [Suspect]
     Active Substance: CLONAZEPAM
     Indication: ANXIETY
  3. KLONOPIN [Suspect]
     Active Substance: CLONAZEPAM
     Indication: PRODUCT USED FOR UNKNOWN INDICATION
     Dosage: FOR YEARS
     Route: 065
     Dates: end: 2005

REACTIONS (2)
  - Palpitations [Unknown]
  - Headache [Unknown]

NARRATIVE: CASE EVENT DATE: 20181003
